FAERS Safety Report 9782416 (Version 1)
Quarter: 2013Q4

REPORT INFORMATION
  Report Type: Report from Study
  Country: AR (occurrence: AR)
  Receive Date: 20131226
  Receipt Date: 20131226
  Transmission Date: 20140711
  Serious: Yes (Other)
  Sender: FDA-Public Use
  Company Number: PHHY2013AR150440

PATIENT
  Sex: Female

DRUGS (2)
  1. ONBREZ [Suspect]
     Indication: CHRONIC OBSTRUCTIVE PULMONARY DISEASE
     Dosage: 150 UG, ONE DAILY
     Route: 055
     Dates: start: 201307
  2. ONBREZ [Suspect]
     Indication: EMPHYSEMA

REACTIONS (1)
  - Intervertebral disc protrusion [Recovering/Resolving]
